FAERS Safety Report 6824121-9 (Version None)
Quarter: 2010Q3

REPORT INFORMATION
  Report Type: 
  Country: None (occurrence: None)
  Receive Date: 20100708
  Receipt Date: 20061002
  Transmission Date: 20110219
  Serious: Yes (Other)
  Sender: FDA-Public Use
  Company Number: US-PFIZER INC-2006120408

PATIENT
  Sex: Female
  Weight: 72.57 kg

DRUGS (1)
  1. CHANTIX [Suspect]
     Indication: SMOKING CESSATION THERAPY
     Dates: start: 20060801, end: 20060101

REACTIONS (3)
  - COGNITIVE DISORDER [None]
  - NAUSEA [None]
  - SOMNOLENCE [None]
